FAERS Safety Report 8363541-0 (Version None)
Quarter: 2012Q2

REPORT INFORMATION
  Report Type: 
  Country: None (occurrence: None)
  Receive Date: 20120516
  Receipt Date: 20120511
  Transmission Date: 20120825
  Serious: Yes (Other)
  Sender: FDA-Public Use
  Company Number: PHEH2012US010022

PATIENT
  Sex: Female

DRUGS (6)
  1. VITAMINS NOS [Concomitant]
     Dosage: UNK
  2. DIOVAN HCT [Suspect]
     Dosage: 320/25 MG, UNK
  3. ONGLYZA [Concomitant]
     Dosage: 5 MG, UNK
  4. FEMHRT [Concomitant]
     Dosage: UNK
  5. CALCIUM [Concomitant]
     Dosage: UNK
  6. AMBIEN [Concomitant]
     Dosage: 5 MG, UNK

REACTIONS (2)
  - DIABETES MELLITUS [None]
  - WEIGHT DECREASED [None]
